FAERS Safety Report 7817707-6 (Version None)
Quarter: 2011Q4

REPORT INFORMATION
  Report Type: 
  Country: None (occurrence: None)
  Receive Date: 20111017
  Receipt Date: 20111012
  Transmission Date: 20120403
  Serious: Yes (Hospitalization, Other)
  Sender: FDA-Public Use
  Company Number: JP-ABBOTT-11P-087-0842766-00

PATIENT
  Sex: Female

DRUGS (10)
  1. TPN [Concomitant]
     Indication: CROHN'S DISEASE
     Dosage: 1-2 TIMES PER DAY
     Dates: start: 20110816
  2. HUMIRA [Suspect]
     Dates: start: 20110719, end: 20110719
  3. HUMIRA [Suspect]
     Dates: start: 20110912, end: 20110912
  4. LACTOMIN [Concomitant]
     Indication: BOWEL MOVEMENT IRREGULARITY
     Route: 048
     Dates: start: 20101101
  5. HUMIRA [Suspect]
     Dates: start: 20110704, end: 20110704
  6. HUMIRA [Suspect]
     Dates: start: 20110926, end: 20110926
  7. TPN [Concomitant]
     Indication: PARENTERAL NUTRITION
     Dosage: 4-5 TIMES PER DAY
     Dates: start: 20101101, end: 20110728
  8. HUMIRA [Suspect]
     Indication: CROHN'S DISEASE
     Route: 058
     Dates: start: 20110620, end: 20110620
  9. MESALAMINE [Concomitant]
     Indication: CROHN'S DISEASE
     Route: 048
     Dates: start: 20101101
  10. OMEPRAZOLE [Concomitant]
     Indication: GASTRIC PH DECREASED
     Route: 048
     Dates: start: 20101101

REACTIONS (2)
  - INTESTINAL STENOSIS [None]
  - ILEUS [None]
